FAERS Safety Report 8991208 (Version 1)
Quarter: 2012Q4

REPORT INFORMATION
  Report Type: 
  Country: US (occurrence: US)
  Receive Date: 20121231
  Receipt Date: 20121231
  Transmission Date: 20130627
  Serious: Yes (Other)
  Sender: FDA-Public Use
  Company Number: US-009507513-1212USA010702

PATIENT
  Sex: Male

DRUGS (8)
  1. PEGINTRON [Suspect]
     Dosage: 120 microgram/0.5 ml,qw, peg-intron kit  120 RP
     Route: 058
  2. PEGINTRON [Suspect]
     Dosage: UNK
  3. RIBAPAK [Suspect]
     Dosage: 1000/DAY
  4. RIBAPAK [Suspect]
     Dosage: UNK
  5. TELAPREVIR [Suspect]
  6. TIMOLOL MALEATE [Concomitant]
  7. LOVAZA [Concomitant]
     Dosage: 1 g, UNK
  8. TRAVATAN [Concomitant]

REACTIONS (2)
  - Anaemia [Unknown]
  - Disease recurrence [Unknown]
